APPROVED DRUG PRODUCT: INNOHEP
Active Ingredient: TINZAPARIN SODIUM
Strength: 20,000 IU/ML
Dosage Form/Route: INJECTABLE;INJECTION
Application: N020484 | Product #001
Applicant: LEO PHARMA AS
Approved: Jul 14, 2000 | RLD: No | RS: No | Type: DISCN